FAERS Safety Report 13580996 (Version 1)
Quarter: 2017Q2

REPORT INFORMATION
  Report Type: Spontaneous
  Country: US (occurrence: US)
  Receive Date: 20170525
  Receipt Date: 20170525
  Transmission Date: 20170830
  Serious: Yes (Other)
  Sender: FDA-Public Use
  Company Number: US-MYLANLABS-2017M1030054

PATIENT

DRUGS (1)
  1. FENTANYL. [Suspect]
     Active Substance: FENTANYL
     Indication: PAIN
     Dosage: 25 ?G, QH, CHANGE Q48H
     Route: 062

REACTIONS (6)
  - Drug effect decreased [Unknown]
  - Heart rate increased [Unknown]
  - Parkinson^s disease [Unknown]
  - Dyspnoea [Unknown]
  - Palpitations [Unknown]
  - Dyskinesia [Unknown]
